FAERS Safety Report 10598276 (Version 1)
Quarter: 2014Q4

REPORT INFORMATION
  Report Type: Spontaneous
  Country: US (occurrence: None)
  Receive Date: 20141120
  Receipt Date: 20141120
  Transmission Date: 20150529
  Serious: Yes (Hospitalization)
  Sender: FDA-Public Use
  Company Number: None

PATIENT
  Age: 51 Year
  Sex: Male
  Weight: 71.8 kg

DRUGS (25)
  1. BACTRIM DS [Concomitant]
     Active Substance: SULFAMETHOXAZOLE\TRIMETHOPRIM
  2. SOFOSBUVIR 400MG GILEAD [Suspect]
     Active Substance: SOFOSBUVIR
     Indication: HEPATITIS C
     Dosage: 1XDAILY
     Route: 048
     Dates: start: 20140718, end: 20141011
  3. PROGRAF [Concomitant]
     Active Substance: TACROLIMUS\TACROLIMUS ANHYDROUS
  4. ACTIGALL [Concomitant]
     Active Substance: URSODIOL
  5. VITAMIN D [Concomitant]
     Active Substance: CHOLECALCIFEROL
  6. HUMALOG KWIKPEN [Concomitant]
     Active Substance: INSULIN LISPRO
  7. PAMELOR [Concomitant]
     Active Substance: NORTRIPTYLINE HYDROCHLORIDE
  8. MARRAM [Concomitant]
  9. TUCKS COOLING PADS [Concomitant]
  10. COLACE [Concomitant]
     Active Substance: DOCUSATE SODIUM
  11. NEURONTIN [Concomitant]
     Active Substance: GABAPENTIN
  12. PREVACID [Concomitant]
     Active Substance: LANSOPRAZOLE
  13. ZOLOFT [Concomitant]
     Active Substance: SERTRALINE HYDROCHLORIDE
  14. ATIVAN [Concomitant]
     Active Substance: LORAZEPAM
  15. OS-CAL [Concomitant]
  16. LANTUS SOLOSTAR [Concomitant]
     Active Substance: INSULIN GLARGINE
  17. MAG-OX [Concomitant]
  18. LOPRESSOR [Concomitant]
     Active Substance: METOPROLOL TARTRATE
  19. CELLCEPT [Concomitant]
     Active Substance: MYCOPHENOLATE MOFETIL\MYCOPHENOLATE MOFETIL HYDROCHLORIDE
  20. SENOKOT [Concomitant]
     Active Substance: SENNOSIDES
  21. SIMEPREVIR 150MG JANSSEN [Suspect]
     Active Substance: SIMEPREVIR
     Indication: HEPATITIS C
     Dosage: 1XDAILY
     Route: 048
     Dates: start: 20140718, end: 20141011
  22. HYDROMORPHONE [Concomitant]
     Active Substance: HYDROMORPHONE
  23. GLUCOSE CHEWABLE [Concomitant]
  24. DELTASONE [Concomitant]
     Active Substance: PREDNISONE
  25. ZANAFLEX [Concomitant]
     Active Substance: TIZANIDINE HYDROCHLORIDE

REACTIONS (2)
  - Catheter site pain [None]
  - Abdominal pain upper [None]

NARRATIVE: CASE EVENT DATE: 20140816
